FAERS Safety Report 5301562-2 (Version None)
Quarter: 2007Q2

REPORT INFORMATION
  Report Type: 
  Country: None (occurrence: None)
  Receive Date: 20070412
  Receipt Date: 20070330
  Transmission Date: 20071010
  Serious: Yes (Other)
  Sender: FDA-Public Use
  Company Number: 2007RR-06732

PATIENT
  Age: 49 Year
  Sex: Female
  Weight: 73 kg

DRUGS (2)
  1. CEPHALEXIN [Suspect]
     Dates: start: 20061006, end: 20061012
  2. SALBUTAMOL (SALBUTAMOL) [Concomitant]

REACTIONS (1)
  - CYSTITIS [None]
